FAERS Safety Report 9798974 (Version 2)
Quarter: 2014Q1

REPORT INFORMATION
  Report Type: Spontaneous
  Country: US (occurrence: US)
  Receive Date: 20140106
  Receipt Date: 20140123
  Transmission Date: 20141002
  Serious: Yes (Life-Threatening, Hospitalization, Other)
  Sender: FDA-Public Use
  Company Number: US-CELGENEUS-163-20785-13124866

PATIENT
  Age: 59 Year
  Sex: Male

DRUGS (6)
  1. THALOMID [Suspect]
     Indication: PLASMA CELL MYELOMA
     Dosage: 200 MILLIGRAM
     Route: 048
     Dates: start: 200805
  2. THALOMID [Suspect]
     Dosage: 200 MILLIGRAM
     Route: 048
     Dates: start: 200807, end: 200809
  3. VELCADE [Concomitant]
     Indication: PRODUCT USED FOR UNKNOWN INDICATION
     Route: 065
     Dates: start: 200805
  4. VELCADE [Concomitant]
     Route: 065
     Dates: start: 200808, end: 200810
  5. DECADRON [Concomitant]
     Indication: PRODUCT USED FOR UNKNOWN INDICATION
     Route: 065
     Dates: start: 200805
  6. DECADRON [Concomitant]
     Route: 065
     Dates: start: 200808, end: 200810

REACTIONS (6)
  - Peritonitis [Recovered/Resolved]
  - Large intestine perforation [Recovered/Resolved]
  - Peripheral ischaemia [Recovered/Resolved]
  - Deep vein thrombosis [Recovered/Resolved]
  - Deep vein thrombosis [Recovered/Resolved]
  - Wound dehiscence [Recovered/Resolved]
